FAERS Safety Report 6557745-7 (Version None)
Quarter: 2010Q1

REPORT INFORMATION
  Report Type: 
  Country: None (occurrence: None)
  Receive Date: 20100129
  Receipt Date: 20100120
  Transmission Date: 20100710
  Serious: Yes (Hospitalization)
  Sender: FDA-Public Use
  Company Number: BR-ASTRAZENECA-2010SE02788

PATIENT
  Sex: Male

DRUGS (3)
  1. BUDECORT AQUA [Suspect]
     Indication: RHINITIS
     Route: 045
     Dates: start: 20090601
  2. SYMBICORT [Suspect]
     Indication: ASTHMA
     Dosage: 165/4.5 MCG
     Route: 055
     Dates: start: 20090901, end: 20091001
  3. SYMBICORT [Suspect]
     Dosage: 165/4.5 MCG
     Route: 055

REACTIONS (2)
  - AORTIC ANEURYSM [None]
  - LUNG DISORDER [None]
